FAERS Safety Report 10128065 (Version 2)
Quarter: 2014Q2

REPORT INFORMATION
  Report Type: Spontaneous
  Country: FR (occurrence: FR)
  Receive Date: 20140428
  Receipt Date: 20140520
  Transmission Date: 20141212
  Serious: Yes (Hospitalization)
  Sender: FDA-Public Use
  Company Number: FR-ROCHE-1385317

PATIENT
  Age: 55 Year
  Sex: Female
  Weight: 79 kg

DRUGS (11)
  1. MABTHERA [Suspect]
     Indication: PEMPHIGUS
     Route: 042
     Dates: start: 20140130, end: 20140218
  2. DEPAKOTE [Suspect]
     Indication: MANIA
     Route: 048
     Dates: start: 20140216, end: 20140311
  3. IMUREL [Suspect]
     Indication: PEMPHIGUS
     Route: 048
     Dates: start: 20140217, end: 20140311
  4. CORTANCYL [Concomitant]
     Route: 048
  5. PAROXETINE [Concomitant]
     Route: 048
  6. ALPRAZOLAM [Concomitant]
     Route: 048
  7. PANTOPRAZOLE [Concomitant]
     Route: 065
  8. VALACICLOVIR [Concomitant]
     Route: 065
     Dates: end: 20140315
  9. RIFINAH [Concomitant]
     Dosage: 300 MG/150 MG
     Route: 048
  10. VITAMIN B6 [Concomitant]
     Route: 048
  11. BACTRIM [Concomitant]
     Route: 065
     Dates: end: 20140317

REACTIONS (2)
  - Neutropenia [Recovered/Resolved]
  - Bone marrow failure [Recovered/Resolved]
